FAERS Safety Report 9249196 (Version 2)
Quarter: 2013Q2

REPORT INFORMATION
  Report Type: Spontaneous
  Country: CA (occurrence: CA)
  Receive Date: 20130423
  Receipt Date: 20130508
  Transmission Date: 20140414
  Serious: Yes (Life-Threatening, Disabling, Other)
  Sender: FDA-Public Use
  Company Number: CA-BAYER-2013-048068

PATIENT
  Age: 21 Year
  Sex: Female

DRUGS (1)
  1. MIRENA [Suspect]
     Indication: CONTRACEPTION
     Dosage: 20 MCG/24HR, CONT
     Route: 015
     Dates: start: 20100527

REACTIONS (7)
  - Pain [None]
  - Pelvic pain [None]
  - Vaginal haemorrhage [None]
  - Anxiety [None]
  - Depression [None]
  - Syncope [None]
  - Malaise [None]
